FAERS Safety Report 7407276-7 (Version None)
Quarter: 2011Q2

REPORT INFORMATION
  Report Type: 
  Country: None (occurrence: None)
  Receive Date: 20110411
  Receipt Date: 20110330
  Transmission Date: 20111010
  Serious: Yes (Other)
  Sender: FDA-Public Use
  Company Number: PHHY2011ES26226

PATIENT
  Sex: Male

DRUGS (1)
  1. EXFORGE [Suspect]

REACTIONS (1)
  - MYASTHENIA GRAVIS [None]
